FAERS Safety Report 9202164 (Version 1)
Quarter: 2013Q1

REPORT INFORMATION
  Report Type: Spontaneous
  Country: AU (occurrence: None)
  Receive Date: 20130328
  Receipt Date: 20130328
  Transmission Date: 20140127
  Serious: Yes (Other)
  Sender: FDA-Public Use
  Company Number: 220828

PATIENT
  Age: 67 Year
  Sex: Male
  Weight: 90 kg

DRUGS (14)
  1. PICATO [Suspect]
     Indication: ACTINIC KERATOSIS
     Dosage: TOPICAL GEL, LEFT PROXIMAL
     Route: 061
     Dates: start: 20130116, end: 20130117
  2. INVESTIGATIONAL DRUG [Suspect]
     Indication: ACTINIC KERATOSIS
     Dosage: TOPICAL GEL, RIGHT PROXIMAL
     Route: 061
     Dates: start: 20130116, end: 20130117
  3. INVESTIGATIONAL DRUG [Suspect]
     Indication: ACTINIC KERATOSIS
     Dosage: TOPICAL GEL, LEFT DISTAL
     Route: 061
     Dates: start: 20130116, end: 20130117
  4. INVESTIGATIONAL DRUG [Suspect]
     Dosage: TOPICAL GEL, RIGHT DISTAL
     Route: 061
     Dates: start: 20130116, end: 20130117
  5. BACLOFEN (BACLOFEN) (BACLOFEN) [Concomitant]
  6. MODAFINIL (MODAFINIL) [Concomitant]
  7. ESOMEPRAZOLE (ESOMEPRAZOLE) [Concomitant]
  8. TRAMADOL (TRAMADOL) [Concomitant]
  9. IBUPROFEN (IBUPROFEN) [Concomitant]
  10. TESTORTERONE (TESTOSTERONE) [Concomitant]
  11. HYDROXOCOBALAMIN (HYDROXOCOBALMIN) [Concomitant]
  12. ROXITHROMYCIN (ROXITHROMYCIN) [Concomitant]
  13. PANADOL OSTEO (PARACETAMOL) [Concomitant]
  14. 5-FLUORUORACIL (FLUOROURACIL) [Concomitant]

REACTIONS (1)
  - Squamous cell carcinoma [None]
